FAERS Safety Report 4919317-7 (Version None)
Quarter: 2006Q1

REPORT INFORMATION
  Report Type: 
  Country: None (occurrence: None)
  Receive Date: 20060113
  Receipt Date: 20051207
  Transmission Date: 20060701
  Serious: No
  Sender: FDA-Public Use
  Company Number: 2005SP004319

PATIENT
  Age: 81 Year
  Sex: Female

DRUGS (1)
  1. LUNESTA [Suspect]
     Dosage: 2 MG; PRN ; ORAL
     Route: 048
     Dates: start: 20051206

REACTIONS (1)
  - DYSGEUSIA [None]
